FAERS Safety Report 5801372-3 (Version None)
Quarter: 2008Q3

REPORT INFORMATION
  Report Type: 
  Country: None (occurrence: None)
  Receive Date: 20080707
  Receipt Date: 20080626
  Transmission Date: 20090109
  Serious: Yes (Other)
  Sender: FDA-Public Use
  Company Number: US-WYE-H04391908

PATIENT
  Sex: Male

DRUGS (6)
  1. ETANERCEPT [Suspect]
     Indication: RHEUMATOID ARTHRITIS
     Route: 058
     Dates: start: 20030117
  2. RELAFEN [Concomitant]
  3. PREDNISONE 50MG TAB [Concomitant]
     Dosage: 15 MG, FREQUENCY UNSPECIFIED
     Dates: start: 20010109
  4. FOLIC ACID [Concomitant]
  5. KETOPROFEN [Concomitant]
     Route: 048
     Dates: start: 20060710, end: 20060917
  6. CELECOXIB [Concomitant]
     Route: 048
     Dates: start: 20060918

REACTIONS (1)
  - INTERSTITIAL LUNG DISEASE [None]
